FAERS Safety Report 9256141 (Version 1)
Quarter: 2013Q2

REPORT INFORMATION
  Report Type: Spontaneous
  Country: US (occurrence: US)
  Receive Date: 20130425
  Receipt Date: 20130425
  Transmission Date: 20140414
  Serious: No
  Sender: FDA-Public Use
  Company Number: US-AMGEN-USASP2012043253

PATIENT
  Age: 13 Year
  Sex: Male

DRUGS (1)
  1. NEULASTA [Suspect]
     Indication: HODGKIN^S DISEASE
     Dosage: UNK UNK, PER CHEMO REGIM
     Dates: start: 201207

REACTIONS (1)
  - Feeling cold [Recovered/Resolved]
